FAERS Safety Report 21360086 (Version 2)
Quarter: 2022Q4

REPORT INFORMATION
  Report Type: Spontaneous
  Country: US (occurrence: US)
  Receive Date: 20220921
  Receipt Date: 20221020
  Transmission Date: 20230113
  Serious: No
  Sender: FDA-Public Use
  Company Number: US-ALXN-A202211264

PATIENT
  Age: 78 Year
  Sex: Male

DRUGS (1)
  1. STRENSIQ [Suspect]
     Active Substance: ASFOTASE ALFA
     Indication: Hypophosphatasia
     Dosage: 120 MG, TIW
     Route: 058
     Dates: start: 20220818

REACTIONS (1)
  - Injection site erythema [Recovered/Resolved]

NARRATIVE: CASE EVENT DATE: 20220901
